FAERS Safety Report 7678839-9 (Version None)
Quarter: 2011Q3

REPORT INFORMATION
  Report Type: 
  Country: None (occurrence: None)
  Receive Date: 20110812
  Receipt Date: 20110801
  Transmission Date: 20111222
  Serious: Yes (Hospitalization, Other)
  Sender: FDA-Public Use
  Company Number: PHHO2011US13140

PATIENT
  Age: 65 Year
  Sex: Male
  Weight: 76 kg

DRUGS (2)
  1. ZOMETA [Suspect]
  2. TARCEVA [Suspect]
     Indication: BRONCHIOLOALVEOLAR CARCINOMA
     Dosage: 100 MG, QD
     Route: 048
     Dates: start: 20110323

REACTIONS (4)
  - WEIGHT DECREASED [None]
  - HALLUCINATION [None]
  - DEHYDRATION [None]
  - PROSTATITIS [None]
